FAERS Safety Report 6342096-6 (Version None)
Quarter: 2009Q3

REPORT INFORMATION
  Report Type: 
  Country: None (occurrence: None)
  Receive Date: 20090904
  Receipt Date: 20090904
  Transmission Date: 20100115
  Serious: Yes (Death, Hospitalization)
  Sender: FDA-Public Use
  Company Number: None

PATIENT
  Sex: Male
  Weight: 98.4 kg

DRUGS (3)
  1. CARBOPLATIN [Suspect]
     Dosage: 825 MG
  2. ERBITUX [Suspect]
     Dosage: 552 MG
  3. ALIMTA [Suspect]
     Dosage: 1090 MG

REACTIONS (10)
  - ASTHENIA [None]
  - BREATH SOUNDS ABNORMAL [None]
  - COUGH [None]
  - HAEMOPTYSIS [None]
  - LUNG NEOPLASM MALIGNANT [None]
  - PNEUMONITIS [None]
  - PULMONARY EMBOLISM [None]
  - PULMONARY FIBROSIS [None]
  - RESPIRATORY FAILURE [None]
  - SQUAMOUS CELL CARCINOMA [None]
